FAERS Safety Report 8479230-8 (Version None)
Quarter: 2012Q2

REPORT INFORMATION
  Report Type: 
  Country: None (occurrence: None)
  Receive Date: 20120629
  Receipt Date: 20120620
  Transmission Date: 20120825
  Serious: Yes (Hospitalization)
  Sender: FDA-Public Use
  Company Number: US-GLAXOSMITHKLINE-A0836190A

PATIENT
  Age: 46 Year
  Sex: Male
  Weight: 90.5 kg

DRUGS (7)
  1. GLUCOVANCE [Concomitant]
  2. FLEXERIL [Concomitant]
  3. AVALIDE [Concomitant]
  4. SINGULAIR [Concomitant]
  5. AVAPRO [Concomitant]
  6. AVANDIA [Suspect]
     Indication: DIABETES MELLITUS
     Dosage: 4MG PER DAY
     Route: 048
     Dates: start: 20000101, end: 20070201
  7. LIPITOR [Concomitant]

REACTIONS (4)
  - MYOCARDIAL INFARCTION [None]
  - CARDIAC DISORDER [None]
  - CARDIAC FAILURE CONGESTIVE [None]
  - IMPLANTABLE DEFIBRILLATOR INSERTION [None]
